FAERS Safety Report 7421738-8 (Version None)
Quarter: 2011Q2

REPORT INFORMATION
  Report Type: 
  Country: None (occurrence: None)
  Receive Date: 20110418
  Receipt Date: 20110408
  Transmission Date: 20111010
  Serious: Yes (Other)
  Sender: FDA-Public Use
  Company Number: CN-ASTRAZENECA-2011SE09623

PATIENT
  Age: 53 Year
  Sex: Female

DRUGS (5)
  1. FORTUM [Concomitant]
  2. TIENAM [Concomitant]
  3. ANTIBIOTICS [Concomitant]
     Indication: PYREXIA
     Dates: start: 20070325, end: 20070401
  4. DIFLUCAN [Concomitant]
  5. GEFITINIB [Suspect]
     Indication: LUNG ADENOCARCINOMA
     Route: 048
     Dates: start: 20070329, end: 20070410

REACTIONS (2)
  - INTERSTITIAL LUNG DISEASE [None]
  - SUFFOCATION FEELING [None]
